FAERS Safety Report 5136763-X (Version None)
Quarter: 2006Q4

REPORT INFORMATION
  Report Type: 
  Country: None (occurrence: None)
  Receive Date: 20061023
  Receipt Date: 20061008
  Transmission Date: 20070319
  Serious: Yes (Other)
  Sender: FDA-Public Use
  Company Number: 2006125622

PATIENT
  Age: 36 Year
  Sex: Male
  Weight: 97.5234 kg

DRUGS (1)
  1. CHANTIX [Suspect]
     Indication: TOBACCO ABUSE
     Dates: start: 20060901

REACTIONS (2)
  - NERVOUSNESS [None]
  - SKIN EXFOLIATION [None]
